FAERS Safety Report 9165779 (Version 1)
Quarter: 2013Q1

REPORT INFORMATION
  Report Type: Spontaneous
  Country: US (occurrence: None)
  Receive Date: 20130228
  Receipt Date: 20130228
  Transmission Date: 20140127
  Serious: Yes (Hospitalization, Other)
  Sender: FDA-Public Use
  Company Number: ACO_34375_2013

PATIENT
  Sex: 0

DRUGS (6)
  1. AMPYRA (DALFAMPRIDINE) TABLET [Suspect]
     Indication: GAIT DISTURBANCE
     Dosage: Q
     Dates: start: 201209, end: 201210
  2. SERTRALINE (SERTRALINE) (SERTRALINE) [Suspect]
  3. GABAPENTIN (GABAPENTIN) [Suspect]
  4. PRILOSEC [Suspect]
  5. CELEBREX (CELECOXIB) [Suspect]
  6. TIZANIDINE [Suspect]

REACTIONS (10)
  - Renal failure acute [None]
  - Pancreatitis acute [None]
  - Gallbladder disorder [None]
  - Gastrooesophageal reflux disease [None]
  - Paranoia [None]
  - Hypertension [None]
  - Hypotension [None]
  - Hypokalaemia [None]
  - Multiple sclerosis relapse [None]
  - Obesity [None]
